FAERS Safety Report 15172077 (Version 1)
Quarter: 2018Q3

REPORT INFORMATION
  Report Type: Spontaneous
  Country: FR (occurrence: FR)
  Receive Date: 20180720
  Receipt Date: 20180720
  Transmission Date: 20181010
  Serious: Yes (Hospitalization)
  Sender: FDA-Public Use
  Company Number: FR-TEVA-2018-FR-929374

PATIENT
  Age: 96 Year
  Sex: Female

DRUGS (5)
  1. FUROSEMIDE. [Concomitant]
     Active Substance: FUROSEMIDE
     Route: 048
  2. AMLOR 5 MG, G?LULE [Concomitant]
     Active Substance: AMLODIPINE BESYLATE
     Route: 048
  3. AMOXICILLINE TRIHYDRATEE [Suspect]
     Active Substance: AMOXICILLIN
     Indication: SEPSIS
     Route: 048
     Dates: start: 20180126, end: 20180126
  4. SECTRAL 200 MG, COMPRIM? PELLICUL? [Concomitant]
     Route: 048
  5. DIFFU K, G?LULE [Concomitant]
     Active Substance: POTASSIUM CHLORIDE
     Route: 048

REACTIONS (2)
  - Hyperthermia [Recovered/Resolved]
  - Urticaria [Recovered/Resolved]

NARRATIVE: CASE EVENT DATE: 20180126
